FAERS Safety Report 5939292-6 (Version None)
Quarter: 2008Q4

REPORT INFORMATION
  Report Type: 
  Country: None (occurrence: None)
  Receive Date: 20081103
  Receipt Date: 20081021
  Transmission Date: 20090506
  Serious: Yes (Death, Hospitalization)
  Sender: FDA-Public Use
  Company Number: FR-ELI_LILLY_AND_COMPANY-FR200810004894

PATIENT
  Sex: Male

DRUGS (8)
  1. ZYPREXA [Suspect]
     Dosage: 1 D/F, DAILY (1/D)
     Route: 048
     Dates: start: 20080807, end: 20080810
  2. RISPERDAL [Concomitant]
     Dosage: 1 D/F, DAILY (1/D)
     Route: 048
     Dates: start: 20080801, end: 20080806
  3. RISPERDAL [Concomitant]
     Dosage: 2 D/F, DAILY (1/D)
     Route: 048
     Dates: start: 20080806, end: 20080807
  4. LARGACTIL [Concomitant]
  5. DIFFU K [Concomitant]
  6. JOSIR [Concomitant]
  7. RIVOTRIL [Concomitant]
     Dosage: 5 D/F, 3/D
  8. RIVOTRIL [Concomitant]
     Dosage: 10 D/F, DAILY (1/D)

REACTIONS (2)
  - CHOLESTASIS [None]
  - DISEASE PROGRESSION [None]
